FAERS Safety Report 7045260-6 (Version None)
Quarter: 2010Q4

REPORT INFORMATION
  Report Type: 
  Country: None (occurrence: None)
  Receive Date: 20101014
  Receipt Date: 20100726
  Transmission Date: 20110411
  Serious: No
  Sender: FDA-Public Use
  Company Number: US-ALLERGAN-1009742US

PATIENT
  Age: 52 Year
  Sex: Female

DRUGS (2)
  1. LATISSE [Suspect]
     Indication: HYPOTRICHOSIS
     Dosage: 1 GTT, QHS
     Route: 061
     Dates: start: 20100320, end: 20100601
  2. CHEMOTHERAPY [Concomitant]
     Indication: PRODUCT USED FOR UNKNOWN INDICATION
     Dosage: UNK
     Dates: end: 20100601

REACTIONS (6)
  - DRUG ADMINISTERED AT INAPPROPRIATE SITE [None]
  - DRUG INEFFECTIVE [None]
  - EYE DISCHARGE [None]
  - HAIR GROWTH ABNORMAL [None]
  - LACRIMATION INCREASED [None]
  - MADAROSIS [None]
